FAERS Safety Report 21966548 (Version 1)
Quarter: 2023Q1

REPORT INFORMATION
  Report Type: Spontaneous
  Country: CA (occurrence: CA)
  Receive Date: 20230208
  Receipt Date: 20230208
  Transmission Date: 20230418
  Serious: Yes (Other)
  Sender: FDA-Public Use
  Company Number: None

PATIENT
  Age: 55 Year
  Sex: Male
  Weight: 85 kg

DRUGS (6)
  1. METHOTREXATE [Suspect]
     Active Substance: METHOTREXATE
     Indication: Colitis ulcerative
     Dosage: 1 EVERY 1 WEEKS
     Route: 048
  2. FOLIC ACID [Concomitant]
     Active Substance: FOLIC ACID
     Dosage: 3 EVERY 1 DAYS
     Route: 048
  3. INH [Concomitant]
     Active Substance: ISONIAZID
     Indication: Tuberculosis
  4. MESALAMINE [Concomitant]
     Active Substance: MESALAMINE
     Dosage: 2 EVERY 1 DAYS
  5. VITAMIN B6 [Concomitant]
     Active Substance: PYRIDOXINE HYDROCHLORIDE
     Indication: Tuberculosis
  6. MESALAMINE [Concomitant]
     Active Substance: MESALAMINE
     Dosage: EVERY 1 DAYS, DELAYED AND EXTENDED RELEASE

REACTIONS (7)
  - Condition aggravated [Recovered/Resolved]
  - Drug ineffective [Unknown]
  - Erythema [Recovered/Resolved]
  - Gastrointestinal inflammation [Recovered/Resolved]
  - Latent tuberculosis [Recovered/Resolved]
  - Oedema [Recovered/Resolved]
  - Stress [Recovered/Resolved]
